FAERS Safety Report 8194198-X (Version None)
Quarter: 2012Q1

REPORT INFORMATION
  Report Type: 
  Country: None (occurrence: None)
  Receive Date: 20120308
  Receipt Date: 20120301
  Transmission Date: 20120608
  Serious: Yes (Other)
  Sender: FDA-Public Use
  Company Number: US-FRI-1000028788

PATIENT
  Age: 55 Year
  Sex: Male

DRUGS (1)
  1. VIIBRYD [Suspect]
     Route: 048

REACTIONS (1)
  - SELF-INJURIOUS IDEATION [None]
